FAERS Safety Report 8035836-1 (Version None)
Quarter: 2012Q1

REPORT INFORMATION
  Report Type: 
  Country: None (occurrence: None)
  Receive Date: 20120111
  Receipt Date: 20120111
  Transmission Date: 20120608
  Serious: Yes (Hospitalization)
  Sender: FDA-Public Use
  Company Number: None

PATIENT
  Age: 60 Year
  Sex: Female
  Weight: 63.502 kg

DRUGS (2)
  1. MACRODANTIN [Suspect]
     Indication: URINARY TRACT INFECTION
     Dosage: 50 MG
     Route: 048
  2. NITROFURANTOIN [Concomitant]
     Indication: URINARY TRACT INFECTION

REACTIONS (2)
  - LIVER INJURY [None]
  - AUTOIMMUNE HEPATITIS [None]
